FAERS Safety Report 9273411 (Version 2)
Quarter: 2013Q2

REPORT INFORMATION
  Report Type: Spontaneous
  Country: US (occurrence: US)
  Receive Date: 20130506
  Receipt Date: 20130604
  Transmission Date: 20140414
  Serious: No
  Sender: FDA-Public Use
  Company Number: US-AMGEN-USASP2013026243

PATIENT
  Age: 55 Year
  Sex: Female
  Weight: 49.43 kg

DRUGS (3)
  1. ENBREL [Suspect]
     Indication: RHEUMATOID ARTHRITIS
     Dosage: 50 MG, QWK
     Dates: start: 20121212
  2. METHOTREXATE [Concomitant]
     Dosage: 2 TABLETS (2.5 MG EACH), QWK
     Route: 048
     Dates: start: 20130322
  3. PLAQUENIL                          /00072602/ [Concomitant]
     Dosage: 200 MG, TID
     Route: 048
     Dates: start: 2007

REACTIONS (5)
  - Dry eye [Not Recovered/Not Resolved]
  - Headache [Recovered/Resolved]
  - Ocular hyperaemia [Recovered/Resolved]
  - Blood pressure increased [Unknown]
  - Injection site pain [Recovered/Resolved]
